FAERS Safety Report 4281226-7 (Version None)
Quarter: 2004Q1

REPORT INFORMATION
  Report Type: 
  Country: None (occurrence: None)
  Receive Date: 20040112
  Receipt Date: 20031006
  Transmission Date: 20041129
  Serious: Yes (Other)
  Sender: FDA-Public Use
  Company Number: 348625

PATIENT
  Age: 38 Year
  Sex: Female
  Weight: 78 kg

DRUGS (1)
  1. VIREAD (ENFUVIRTIDE) [Suspect]
     Indication: DRUG USE FOR UNKNOWN INDICATION
     Dosage: SUBCUTANEOUS
     Route: 058
     Dates: start: 20030715

REACTIONS (2)
  - MEDICATION ERROR [None]
  - NO ADVERSE DRUG EFFECT [None]
